FAERS Safety Report 5803975-9 (Version None)
Quarter: 2008Q3

REPORT INFORMATION
  Report Type: 
  Country: None (occurrence: None)
  Receive Date: 20080703
  Receipt Date: 20080624
  Transmission Date: 20090109
  Serious: Yes (Death, Hospitalization)
  Sender: FDA-Public Use
  Company Number: 2008AL007547

PATIENT
  Age: 94 Year
  Sex: Male

DRUGS (2)
  1. DIGOXIN [Suspect]
     Indication: CARDIAC DISORDER
     Dates: start: 19920101, end: 20030131
  2. COUMADIN [Concomitant]

REACTIONS (2)
  - RENAL FAILURE [None]
  - THERAPEUTIC AGENT TOXICITY [None]
